FAERS Safety Report 13737207 (Version 1)
Quarter: 2017Q3

REPORT INFORMATION
  Report Type: Spontaneous
  Country: US (occurrence: US)
  Receive Date: 20170710
  Receipt Date: 20170710
  Transmission Date: 20171127
  Serious: Yes (Other)
  Sender: FDA-Public Use
  Company Number: US-SAOL THERAPEUTICS-2016SAO00139

PATIENT
  Age: 65 Year
  Sex: Female

DRUGS (4)
  1. MORPHINE [Suspect]
     Active Substance: MORPHINE
     Dosage: 0.131 MG, \DAY
     Route: 037
  2. COMPOUNDED BACLOFEN [Suspect]
     Active Substance: BACLOFEN
     Dosage: 26.7 ?G, \DAY
     Route: 037
     Dates: start: 20160624
  3. COMPOUNDED BACLOFEN [Suspect]
     Active Substance: BACLOFEN
     Indication: MUSCLE SPASTICITY
     Dosage: 2405.2 ?G\DAY
     Route: 037
  4. MORPHINE [Suspect]
     Active Substance: MORPHINE
     Dosage: 1.1759 MG/DAY
     Route: 037

REACTIONS (3)
  - Hypertonia [Recovered/Resolved]
  - Abnormal behaviour [Recovered/Resolved]
  - Device battery issue [Recovered/Resolved]

NARRATIVE: CASE EVENT DATE: 20160624
